FAERS Safety Report 5205958-9 (Version None)
Quarter: 2007Q1

REPORT INFORMATION
  Report Type: 
  Country: None (occurrence: None)
  Receive Date: 20070108
  Receipt Date: 20061225
  Transmission Date: 20070707
  Serious: Yes (Other)
  Sender: FDA-Public Use
  Company Number: THQ2006A01263

PATIENT
  Sex: Female

DRUGS (10)
  1. ACTOS [Suspect]
     Dosage: 15 MG (15 MG, 1 IN 1 D) PER ORAL
     Route: 048
  2. LEVOTIROXIN (LEVOTHYROXINE) [Concomitant]
  3. TELMISARTAN [Concomitant]
  4. RILMENIDINE [Concomitant]
  5. NIFEDIPINE [Concomitant]
  6. LANSOPRAZOLE [Concomitant]
  7. FLUOXETINE [Concomitant]
  8. LORABID [Concomitant]
  9. CLONAZEPAM [Concomitant]
  10. ISOSORBIDE [Concomitant]

REACTIONS (2)
  - ILL-DEFINED DISORDER [None]
  - PERIPHERAL EMBOLISM [None]
